FAERS Safety Report 5727901-6 (Version None)
Quarter: 2008Q2

REPORT INFORMATION
  Report Type: 
  Country: None (occurrence: None)
  Receive Date: 20080505
  Receipt Date: 20080425
  Transmission Date: 20081010
  Serious: Yes (Other)
  Sender: FDA-Public Use
  Company Number: US-PFIZER INC-2008012745

PATIENT
  Sex: Male
  Weight: 100.7 kg

DRUGS (5)
  1. LIPITOR [Suspect]
  2. LASIX [Concomitant]
     Dosage: DAILY DOSE:20MG-FREQ:HALF A TABLET DAILY
     Route: 048
  3. VIAGRA [Concomitant]
  4. ACETYLSALICYLIC ACID SRT [Concomitant]
     Dosage: FREQ:DAILY
  5. ALBUTEROL [Concomitant]
     Dosage: FREQ:AS NEEDED
     Route: 055

REACTIONS (2)
  - GLYCOSYLATED HAEMOGLOBIN INCREASED [None]
  - TYPE 2 DIABETES MELLITUS [None]
